FAERS Safety Report 7657938-1 (Version None)
Quarter: 2011Q3

REPORT INFORMATION
  Report Type: 
  Country: None (occurrence: None)
  Receive Date: 20110805
  Receipt Date: 20110726
  Transmission Date: 20111222
  Serious: No
  Sender: FDA-Public Use
  Company Number: US-BIOGENIDEC-2011BI027896

PATIENT
  Sex: Female

DRUGS (2)
  1. AVONEX [Suspect]
     Indication: MULTIPLE SCLEROSIS
     Route: 030
     Dates: start: 20110630
  2. AVONEX [Suspect]
     Route: 030
     Dates: start: 20050620, end: 20091002

REACTIONS (3)
  - FATIGUE [None]
  - HYPERHIDROSIS [None]
  - HALLUCINATION, AUDITORY [None]
